FAERS Safety Report 9625767 (Version 3)
Quarter: 2014Q2

REPORT INFORMATION
  Report Type: Spontaneous
  Country: DE (occurrence: DE)
  Receive Date: 20131016
  Receipt Date: 20140604
  Transmission Date: 20141212
  Serious: Yes (Hospitalization, Other)
  Sender: FDA-Public Use
  Company Number: PHHY2013DE114654

PATIENT
  Age: 53 Year
  Sex: Female

DRUGS (30)
  1. RASILEZ [Suspect]
     Indication: HYPERTENSION
     Dosage: 1 DF (150MG) QD
     Route: 048
     Dates: start: 20100805
  2. RASILEZ [Suspect]
     Dosage: 2 DF (150MG) QD
     Route: 048
     Dates: start: 20110328, end: 20120101
  3. NITRENDIPIN [Concomitant]
     Indication: HYPERTENSION
     Dosage: 1 DF, BID (10 MG)
     Route: 048
     Dates: start: 200701
  4. DIOVAN [Concomitant]
     Dosage: 1 DF, QD (160 MG)
     Route: 048
     Dates: start: 20100901
  5. DIOVAN [Concomitant]
     Dosage: 1 DF, BID  (160 MG)
     Route: 048
     Dates: start: 20101123, end: 20110128
  6. DIOVAN [Concomitant]
     Dosage: 1 DF, QD  (160 MG)
     Route: 048
     Dates: start: 20110328
  7. INSUMAN BASAL [Concomitant]
     Indication: TYPE 1 DIABETES MELLITUS
     Dosage: 10 IU / 8 IU
     Route: 058
     Dates: start: 2003
  8. INSUMAN BASAL [Concomitant]
     Dosage: 0-10IU/ 8IU
     Dates: start: 20080725, end: 20110801
  9. ACTRAPID HM//INSULIN HUMAN [Concomitant]
     Indication: TYPE 1 DIABETES MELLITUS
     Dosage: 1 TO 2 IU PER DAY
     Route: 058
     Dates: start: 2003
  10. ACTRAPID HM//INSULIN HUMAN [Concomitant]
     Dosage: 3 IU-2 IU-2-3 IU-0 IU
     Route: 058
     Dates: start: 20080725, end: 20110101
  11. DIPIPERON [Concomitant]
     Dosage: 5 ML WHEN NEEDED PER DAY
     Route: 048
  12. CODIOVAN [Concomitant]
     Indication: HYPERTENSION
     Dosage: 1 DF, QD (160 MG VAL/12.5 MG HCT)
     Route: 048
     Dates: start: 20050607, end: 20110328
  13. BUDENOFALK [Concomitant]
     Dosage: UNK UKN, PRN
  14. IMODIUM [Concomitant]
     Dosage: UNK UKN, PRN
  15. AMLODIGAMMA [Concomitant]
     Dosage: 0.5 DF, QD (10MG)
     Dates: start: 20120403, end: 20120410
  16. AMLODINE//AMLODIPINE BESILATE [Concomitant]
     Dosage: 1 DF, QD (5MG)
     Dates: start: 20120507
  17. SIMVASTATIN [Concomitant]
     Dosage: 1 DF, QD (20MG)
     Dates: start: 20120507
  18. SIMVASTATIN [Concomitant]
     Dosage: 0.5 DF, QD
     Dates: start: 20130314
  19. EUTHYROX [Concomitant]
     Dosage: 1 DF, QD (50UG)
     Dates: start: 20110318
  20. EUTHYROX [Concomitant]
     Dosage: 1 DF, QOD (75UG)
     Dates: start: 20120403
  21. LANTUS [Concomitant]
     Dosage: 12 IU-0 IU-1-2 IU-1-2 IU-0IU
     Dates: start: 20110801
  22. LANTUS [Concomitant]
     Dosage: 13 IU-0-1IU-0
     Dates: start: 20130314
  23. APIDRA [Concomitant]
     Dosage: 12 IU-0-2 IU-0 IU-1-2 IU-1-2 IU-2 IU-0 IU
     Dates: start: 20110801
  24. APIDRA [Concomitant]
     Dosage: 1 IU- 2-3 IU-0 IU
     Dates: start: 20130314
  25. AMLODIPIN 1 A PHARMA [Concomitant]
     Dosage: 1 DF, QD (5MG)
     Dates: start: 20120301
  26. DOXAZOSIN 1 A PHARMA [Concomitant]
     Dosage: 1 DF, QD (4MG)
     Dates: start: 20120410
  27. DOXAZOSIN 1 A PHARMA [Concomitant]
     Dosage: 1 DF, BID
     Dates: start: 20120507, end: 20130314
  28. NITRENDIPIN CT [Concomitant]
     Dosage: 1 DF, PRN (10MG)
     Dates: start: 20080725
  29. NITRENDIPIN CT [Concomitant]
     Dosage: 1 DF, BID
     Dates: start: 20101123
  30. NITRENDIPIN CT [Concomitant]
     Dosage: 1 DF, TID
     Dates: start: 20110328, end: 20120403

REACTIONS (15)
  - Cerebral ischaemia [Recovered/Resolved with Sequelae]
  - Cerebrovascular accident [Recovered/Resolved with Sequelae]
  - Muscular weakness [Recovered/Resolved]
  - Hypoaesthesia [Recovered/Resolved]
  - Hypoaesthesia oral [Recovered/Resolved]
  - Dysphonia [Recovered/Resolved]
  - Diabetic nephropathy [Recovered/Resolved]
  - Proteinuria [Recovered/Resolved]
  - General physical health deterioration [Not Recovered/Not Resolved]
  - Blood glucose fluctuation [Recovered/Resolved]
  - Arteriosclerosis [Recovered/Resolved]
  - Vascular encephalopathy [Recovered/Resolved]
  - Blood pressure increased [Recovered/Resolved]
  - Performance status decreased [Not Recovered/Not Resolved]
  - Hyporeflexia [Recovered/Resolved]
